FAERS Safety Report 10208447 (Version 1)
Quarter: 2014Q2

REPORT INFORMATION
  Report Type: Spontaneous
  Country: US (occurrence: US)
  Receive Date: 20140530
  Receipt Date: 20140530
  Transmission Date: 20141212
  Serious: Yes (Hospitalization)
  Sender: FDA-Public Use
  Company Number: US-GLAXOSMITHKLINE-A1074563A

PATIENT
  Age: 36 Year
  Sex: Female

DRUGS (1)
  1. LAMICTAL [Suspect]
     Indication: CONVULSION
     Dosage: 200MG TWICE PER DAY
     Route: 048
     Dates: start: 2012

REACTIONS (5)
  - Convulsion [Unknown]
  - Altered state of consciousness [Unknown]
  - Incorrect dose administered [Unknown]
  - Drug screen false positive [Unknown]
  - Adverse drug reaction [Unknown]
